FAERS Safety Report 20082761 (Version 1)
Quarter: 2021Q4

REPORT INFORMATION
  Report Type: Spontaneous
  Country: US (occurrence: None)
  Receive Date: 20211117
  Receipt Date: 20211117
  Transmission Date: 20220303
  Serious: Yes (Hospitalization)
  Sender: FDA-Public Use
  Company Number: None

PATIENT
  Age: 57 Year
  Sex: Female

DRUGS (7)
  1. BOTOX [Suspect]
     Active Substance: ONABOTULINUMTOXINA
     Indication: Migraine
     Dosage: OTHER FREQUENCY : EVERY 3 MONTHS;?
     Route: 030
     Dates: start: 20200226
  2. DULOXETINE [Concomitant]
     Active Substance: DULOXETINE
  3. HUMIRA [Concomitant]
     Active Substance: ADALIMUMAB
  4. Leucovor CA [Concomitant]
  5. Levocetirizi [Concomitant]
  6. METHOTREXATE [Concomitant]
     Active Substance: METHOTREXATE
  7. TRAZODONE [Concomitant]
     Active Substance: TRAZODONE HYDROCHLORIDE

REACTIONS (4)
  - Jaw operation [None]
  - Mandibular prosthesis user [None]
  - Surgical procedure repeated [None]
  - Knee arthroplasty [None]

NARRATIVE: CASE EVENT DATE: 20211006
